FAERS Safety Report 4750579-5 (Version None)
Quarter: 2005Q3

REPORT INFORMATION
  Report Type: 
  Country: None (occurrence: None)
  Receive Date: 20050818
  Receipt Date: 20050808
  Transmission Date: 20060218
  Serious: Yes (Hospitalization, Other)
  Sender: FDA-Public Use
  Company Number: HQWYE769808AUG05

PATIENT
  Age: 35 Year
  Sex: Female

DRUGS (1)
  1. ADVIL [Suspect]
     Dosage: 3 TABLETS DAILY ORAL
     Route: 048
     Dates: start: 20050527, end: 20050531

REACTIONS (4)
  - CHOLESTASIS [None]
  - CONDITION AGGRAVATED [None]
  - CYTOLYTIC HEPATITIS [None]
  - HEPATITIS A [None]
